FAERS Safety Report 8025972-8 (Version None)
Quarter: 2012Q1

REPORT INFORMATION
  Report Type: 
  Country: None (occurrence: None)
  Receive Date: 20120105
  Receipt Date: 20110926
  Transmission Date: 20120608
  Serious: No
  Sender: FDA-Public Use
  Company Number: US-ABBOTT-11P-163-0859204-00

PATIENT
  Sex: Female
  Weight: 63.56 kg

DRUGS (4)
  1. SYNTHROID [Suspect]
     Indication: HYPOTHYROIDISM
  2. SYNTHROID [Suspect]
     Dosage: 200MCG DAILY
     Dates: end: 20110814
  3. SYNTHROID [Suspect]
     Dosage: 300MCG DAILY
     Dates: start: 20110815
  4. DYAZIDE [Concomitant]
     Indication: OSTEOPOROSIS PROPHYLAXIS

REACTIONS (8)
  - FATIGUE [None]
  - NASOPHARYNGITIS [None]
  - HYPOTHYROIDISM [None]
  - DRUG INEFFECTIVE [None]
  - ONYCHOCLASIS [None]
  - WEIGHT DECREASED [None]
  - THYROID FUNCTION TEST ABNORMAL [None]
  - BRADYPHRENIA [None]
